FAERS Safety Report 13698807 (Version 1)
Quarter: 2017Q2

REPORT INFORMATION
  Report Type: Spontaneous
  Country: US (occurrence: US)
  Receive Date: 20170627
  Receipt Date: 20170627
  Transmission Date: 20170830
  Serious: Yes (Disabling)
  Sender: FDA-Public Use
  Company Number: None

PATIENT
  Age: 47 Year
  Sex: Male
  Weight: 121 kg

DRUGS (1)
  1. CIPROFLOXACIN. [Suspect]
     Active Substance: CIPROFLOXACIN
     Dosage: ?          OTHER STRENGTH:MG;?
     Route: 048
     Dates: start: 20170626

REACTIONS (2)
  - Pain in extremity [None]
  - Sensory loss [None]

NARRATIVE: CASE EVENT DATE: 20170626
